FAERS Safety Report 15111288 (Version 7)
Quarter: 2019Q4

REPORT INFORMATION
  Report Type: Report from Study
  Country: US (occurrence: US)
  Receive Date: 20180705
  Receipt Date: 20191213
  Transmission Date: 20200122
  Serious: No
  Sender: FDA-Public Use
  Company Number: US-SA-2018SA178524

PATIENT
  Age: 56 Year
  Sex: Female

DRUGS (2)
  1. IMIGLUCERASE [Suspect]
     Active Substance: IMIGLUCERASE
     Indication: GAUCHER^S DISEASE
     Dosage: 3200 (UNITS NOT PROVIDED) , Q2
     Route: 042
     Dates: start: 20131210
  2. IMIGLUCERASE [Suspect]
     Active Substance: IMIGLUCERASE
     Dosage: 3200 U, QOW
     Route: 042
     Dates: start: 20121016

REACTIONS (2)
  - Product dose omission [Unknown]
  - Malaise [Unknown]
